FAERS Safety Report 9114873 (Version 1)
Quarter: 2013Q1

REPORT INFORMATION
  Report Type: Spontaneous
  Country: DK (occurrence: None)
  Receive Date: 20130129
  Receipt Date: 20130129
  Transmission Date: 20140127
  Serious: No
  Sender: FDA-Public Use
  Company Number: 2013MA000719

PATIENT
  Age: 81 Year
  Sex: Male

DRUGS (9)
  1. FLUOXETINE ORAL SOLUTION USP, 20MG/5ML (ALPHARMA) (FLUOXETINE) [Suspect]
     Indication: DEPRESSION
     Route: 048
     Dates: start: 20050919, end: 20121217
  2. BENDROFLUMETHIAZIDE (BENDROFLUMETHIAZIDE) [Suspect]
     Indication: HYPERTENSION
     Route: 048
     Dates: start: 20070305, end: 20121217
  3. ZOLFIDEM TARTRATE [Concomitant]
  4. TIMOPTOL-LA [Concomitant]
  5. SIMVASTATIN [Concomitant]
  6. BRINZOLAMIDE [Concomitant]
  7. PARACETAMOL [Concomitant]
  8. PARACETAMOL [Concomitant]
  9. IRBESARTAN [Concomitant]

REACTIONS (4)
  - Hyponatraemia [None]
  - Confusional state [None]
  - Lethargy [None]
  - Fall [None]
